FAERS Safety Report 5437649-3 (Version None)
Quarter: 2007Q3

REPORT INFORMATION
  Report Type: 
  Country: None (occurrence: None)
  Receive Date: 20070831
  Receipt Date: 20070730
  Transmission Date: 20080115
  Serious: No
  Sender: FDA-Public Use
  Company Number: A0666633A

PATIENT
  Age: 87 Year
  Sex: Male

DRUGS (2)
  1. ALLI [Suspect]
     Route: 048
     Dates: start: 20070705, end: 20070726
  2. UNSPECIFIED MEDICATIONS [Concomitant]

REACTIONS (2)
  - PHARMACEUTICAL PRODUCT COMPLAINT [None]
  - WEIGHT INCREASED [None]
